FAERS Safety Report 11547846 (Version 1)
Quarter: 2015Q3

REPORT INFORMATION
  Report Type: Spontaneous
  Country: US (occurrence: US)
  Receive Date: 20150903
  Receipt Date: 20150903
  Transmission Date: 20151125
  Serious: No
  Sender: FDA-Public Use
  Company Number: US-ELI_LILLY_AND_COMPANY-US201105002805

PATIENT
  Sex: Female

DRUGS (2)
  1. HUMALOG [Suspect]
     Active Substance: INSULIN LISPRO
     Indication: DIABETES MELLITUS
     Dosage: 50 U, TID
  2. LANTUS [Concomitant]
     Active Substance: INSULIN GLARGINE
     Dosage: UNK

REACTIONS (9)
  - Underdose [Unknown]
  - Needle issue [Unknown]
  - Injection site pain [Unknown]
  - Feeling abnormal [Unknown]
  - Tendonitis [Not Recovered/Not Resolved]
  - Injection site mass [Unknown]
  - Drug dose omission [Unknown]
  - Chondropathy [Not Recovered/Not Resolved]
  - Fear [Unknown]
